FAERS Safety Report 18234727 (Version 3)
Quarter: 2020Q4

REPORT INFORMATION
  Report Type: Spontaneous
  Country: GB (occurrence: GB)
  Receive Date: 20200904
  Receipt Date: 20201202
  Transmission Date: 20210113
  Serious: Yes (Other)
  Sender: FDA-Public Use
  Company Number: GB-BAUSCH-BL-2020-025319

PATIENT
  Age: 71 Year
  Sex: Female
  Weight: 54 kg

DRUGS (5)
  1. PLENVU [Suspect]
     Active Substance: ASCORBIC ACID\POLYETHYLENE GLYCOL 3350\POTASSIUM CHLORIDE\SODIUM ASCORBATE\SODIUM CHLORIDE\SODIUM SULFATE
     Indication: BOWEL PREPARATION
     Dosage: 16:00:00, DOSE 1 AS DIRECTED
     Route: 048
     Dates: start: 20200817, end: 202008
  2. EMOZUL [Concomitant]
     Active Substance: ESOMEPRAZOLE MAGNESIUM
     Indication: ILL-DEFINED DISORDER
     Dosage: GASTRO-RESISTANT
  3. GAVISCON ADVANCED [Concomitant]
     Indication: PRODUCT USED FOR UNKNOWN INDICATION
  4. ADCAL [Concomitant]
     Indication: ILL-DEFINED DISORDER
  5. PLENVU [Suspect]
     Active Substance: ASCORBIC ACID\POLYETHYLENE GLYCOL 3350\POTASSIUM CHLORIDE\SODIUM ASCORBATE\SODIUM CHLORIDE\SODIUM SULFATE
     Indication: ILL-DEFINED DISORDER
     Dosage: DOSE 2 AS DIRECTED
     Route: 048
     Dates: start: 20200818

REACTIONS (15)
  - Malaise [Unknown]
  - Frequent bowel movements [Unknown]
  - Body temperature decreased [Recovered/Resolved with Sequelae]
  - Product taste abnormal [Unknown]
  - Feeling cold [Recovered/Resolved with Sequelae]
  - Dry throat [Not Recovered/Not Resolved]
  - Respiration abnormal [Recovered/Resolved]
  - Incorrect dose administered [Unknown]
  - Dysphonia [Recovered/Resolved with Sequelae]
  - Retching [Recovered/Resolved with Sequelae]
  - Oropharyngeal pain [Recovered/Resolved with Sequelae]
  - Product use complaint [Unknown]
  - Presyncope [Recovered/Resolved with Sequelae]
  - Nausea [Unknown]
  - Product physical consistency issue [Unknown]

NARRATIVE: CASE EVENT DATE: 2020
